FAERS Safety Report 15566241 (Version 1)
Quarter: 2018Q4

REPORT INFORMATION
  Report Type: Spontaneous
  Country: US (occurrence: US)
  Receive Date: 20181025
  Receipt Date: 20181025
  Transmission Date: 20190205
  Serious: Yes (Hospitalization)
  Sender: FDA-Public Use
  Company Number: None

PATIENT
  Age: 57 Year
  Sex: Female

DRUGS (33)
  1. COUMADIN [Concomitant]
     Active Substance: WARFARIN SODIUM
  2. VIT B-12 [Concomitant]
  3. LORAZEPAM. [Concomitant]
     Active Substance: LORAZEPAM
  4. ENOXAPARIN [Concomitant]
     Active Substance: ENOXAPARIN
  5. HYDROCO/APAP [Concomitant]
     Active Substance: ACETAMINOPHEN\HYDROCODONE
  6. AMOX/K CLAV [Concomitant]
     Active Substance: AMOXICILLIN\CLAVULANATE POTASSIUM
  7. AUG BETAMET [Concomitant]
  8. AZELASTINE. [Concomitant]
     Active Substance: AZELASTINE HYDROCHLORIDE
  9. ZOLPIDEM [Concomitant]
     Active Substance: ZOLPIDEM\ZOLPIDEM TARTRATE
  10. OLOPATADINE. [Concomitant]
     Active Substance: OLOPATADINE
  11. POT CL [Concomitant]
  12. ORENCIA [Suspect]
     Active Substance: ABATACEPT
     Indication: MULTIPLE SCLEROSIS
     Route: 058
     Dates: start: 20180628
  13. ARAVA [Concomitant]
     Active Substance: LEFLUNOMIDE
  14. CYCLOBENZAPR [Concomitant]
     Active Substance: CYCLOBENZAPRINE
  15. BAYER BREEZE MIS 2 [Concomitant]
  16. FOLIC ACID. [Concomitant]
     Active Substance: FOLIC ACID
  17. METHOTREXATE. [Concomitant]
     Active Substance: METHOTREXATE
  18. AMITRIPTYLIN [Concomitant]
     Active Substance: AMITRIPTYLINE
  19. GABAPENTIN. [Concomitant]
     Active Substance: GABAPENTIN
  20. GLIPIZIDE. [Concomitant]
     Active Substance: GLIPIZIDE
  21. HYDROCHLOROT [Concomitant]
     Active Substance: HYDROCHLOROTHIAZIDE
  22. LEFLUNOMIDE. [Concomitant]
     Active Substance: LEFLUNOMIDE
  23. BUPROPION. [Concomitant]
     Active Substance: BUPROPION
  24. AMPYRA [Concomitant]
     Active Substance: DALFAMPRIDINE
  25. JANUVIA [Concomitant]
     Active Substance: SITAGLIPTIN PHOSPHATE
  26. METHYLPRED [Concomitant]
     Active Substance: METHYLPREDNISOLONE
  27. AZITHROMYCIN ANHYDROUS. [Concomitant]
     Active Substance: AZITHROMYCIN ANHYDROUS
  28. FEXOFENADINE [Concomitant]
     Active Substance: FEXOFENADINE\FEXOFENADINE HYDROCHLORIDE
  29. WARFARIN [Concomitant]
     Active Substance: WARFARIN
  30. HYDROXYCHLOR [Concomitant]
     Active Substance: HYDROXYCHLOROQUINE
  31. NORCO [Concomitant]
     Active Substance: ACETAMINOPHEN\HYDROCODONE BITARTRATE
  32. NORVASC [Concomitant]
     Active Substance: AMLODIPINE BESYLATE
  33. OMEPRAZOLE. [Concomitant]
     Active Substance: OMEPRAZOLE

REACTIONS (1)
  - Haematoma [None]

NARRATIVE: CASE EVENT DATE: 20181007
